FAERS Safety Report 8124235-X (Version None)
Quarter: 2012Q1

REPORT INFORMATION
  Report Type: 
  Country: None (occurrence: None)
  Receive Date: 20120209
  Receipt Date: 20091106
  Transmission Date: 20120608
  Serious: Yes (Hospitalization)
  Sender: FDA-Public Use
  Company Number: RU-BRISTOL-MYERS SQUIBB COMPANY-14554976

PATIENT
  Age: 68 Year
  Sex: Female

DRUGS (6)
  1. SAXAGLIPTIN [Suspect]
     Indication: TYPE 2 DIABETES MELLITUS
     Dosage: 25JUL08-04AUG08; 05AUG08-30JUN09; 01JUL09-CONT
     Dates: start: 20080725
  2. INDAPAMID [Concomitant]
     Indication: HYPERTENSION
     Route: 048
     Dates: start: 20080405
  3. ATENOLOL [Concomitant]
     Indication: HYPERTENSION
     Route: 048
     Dates: start: 20080405
  4. PLACEBO [Suspect]
     Indication: TYPE 2 DIABETES MELLITUS
     Dates: start: 20080725
  5. AMLOTOP [Concomitant]
     Indication: HYPERTENSION
     Dates: start: 20080405
  6. METFORMIN HCL [Suspect]
     Indication: TYPE 2 DIABETES MELLITUS
     Route: 048
     Dates: start: 20080725

REACTIONS (1)
  - PULMONARY TUBERCULOSIS [None]
